FAERS Safety Report 7082818-2 (Version None)
Quarter: 2010Q4

REPORT INFORMATION
  Report Type: 
  Country: None (occurrence: None)
  Receive Date: 20101026
  Receipt Date: 20101013
  Transmission Date: 20110411
  Serious: Yes (Other)
  Sender: FDA-Public Use
  Company Number: 2010SP047500

PATIENT
  Age: 63 Year
  Sex: Female
  Weight: 73 kg

DRUGS (1)
  1. NASONEX [Suspect]
     Indication: CHRONIC SINUSITIS
     Dosage: 50 MCG;
     Dates: start: 20100727, end: 20100812

REACTIONS (9)
  - CHEST DISCOMFORT [None]
  - CONDITION AGGRAVATED [None]
  - DISCOMFORT [None]
  - DYSPNOEA [None]
  - HEADACHE [None]
  - HYPERTENSION [None]
  - ORAL PRURITUS [None]
  - REACTION TO DRUG EXCIPIENTS [None]
  - RESTLESSNESS [None]
